FAERS Safety Report 25765255 (Version 1)
Quarter: 2025Q3

REPORT INFORMATION
  Report Type: Report from Study
  Country: US (occurrence: US)
  Receive Date: 20250905
  Receipt Date: 20250905
  Transmission Date: 20251021
  Serious: Yes (Other)
  Sender: ABBVIE
  Company Number: US-ABBVIE-6412690

PATIENT
  Sex: Male

DRUGS (2)
  1. HUMIRA [Suspect]
     Active Substance: ADALIMUMAB
     Indication: Product used for unknown indication
     Route: 058
  2. DEXTROSE\ELECTROLYTES NOS [Suspect]
     Active Substance: DEXTROSE\ELECTROLYTES NOS
     Indication: Product used for unknown indication
     Route: 065

REACTIONS (4)
  - Blindness [Not Recovered/Not Resolved]
  - Symptom recurrence [Unknown]
  - Visual impairment [Unknown]
  - Uveitis [Unknown]
